FAERS Safety Report 24550956 (Version 1)
Quarter: 2024Q4

REPORT INFORMATION
  Report Type: Spontaneous
  Country: US (occurrence: US)
  Receive Date: 20241025
  Receipt Date: 20241025
  Transmission Date: 20250114
  Serious: Yes (Other)
  Sender: DR REDDYS
  Company Number: US-DRL-USA-LIT/USA/24/0015821

PATIENT
  Sex: Male
  Weight: 2.17 kg

DRUGS (1)
  1. METHAMPHETAMINE [Suspect]
     Active Substance: METHAMPHETAMINE
     Indication: Product used for unknown indication
     Route: 064

REACTIONS (5)
  - Congenital syphilis [Unknown]
  - HIV infection [Unknown]
  - Hypoxia [Unknown]
  - Foetal exposure during pregnancy [Unknown]
  - Premature baby [Unknown]
